FAERS Safety Report 6987195-0 (Version None)
Quarter: 2010Q3

REPORT INFORMATION
  Report Type: 
  Country: None (occurrence: None)
  Receive Date: 20100916
  Receipt Date: 20100909
  Transmission Date: 20110219
  Serious: Yes (Other)
  Sender: FDA-Public Use
  Company Number: CHPA2010CA14527

PATIENT
  Age: 76 Year
  Sex: Male

DRUGS (2)
  1. TRANSDERM VOYAGER [Suspect]
     Indication: MOTION SICKNESS
     Dosage: 1 PATCH, UNK
     Route: 062
     Dates: start: 20100901, end: 20100901
  2. ARICEPT [Suspect]
     Indication: AMNESIA
     Dosage: UNK
     Route: 048

REACTIONS (4)
  - CONFUSIONAL STATE [None]
  - DRUG INTERACTION [None]
  - HALLUCINATION [None]
  - INCOHERENT [None]
